FAERS Safety Report 5065236-8 (Version None)
Quarter: 2006Q3

REPORT INFORMATION
  Report Type: 
  Country: None (occurrence: None)
  Receive Date: 20060725
  Receipt Date: 20040318
  Transmission Date: 20061208
  Serious: Yes (Hospitalization)
  Sender: FDA-Public Use
  Company Number: 7690

PATIENT
  Age: 53 Year
  Sex: Male

DRUGS (4)
  1. MORPHINE [Suspect]
     Indication: PROCEDURAL PAIN
     Dosage: 1 MG IV
     Route: 042
  2. TRAMADOL HCL [Suspect]
     Indication: OSTEOARTHRITIS
     Dosage: 100 MG BID PO
     Route: 048
  3. ACETAMINOPHEN [Concomitant]
  4. OMEPRAZOLE [Concomitant]

REACTIONS (9)
  - DRUG WITHDRAWAL SYNDROME [None]
  - DYSKINESIA [None]
  - DYSPNOEA [None]
  - ELECTROCARDIOGRAM ST SEGMENT DEPRESSION [None]
  - HYPERHIDROSIS [None]
  - MUSCLE CONTRACTIONS INVOLUNTARY [None]
  - MUSCLE RIGIDITY [None]
  - TACHYCARDIA [None]
  - VASOCONSTRICTION [None]
